FAERS Safety Report 10085657 (Version 1)
Quarter: 2014Q2

REPORT INFORMATION
  Report Type: Spontaneous
  Country: US (occurrence: None)
  Receive Date: 20140416
  Receipt Date: 20140416
  Transmission Date: 20141212
  Serious: Yes (Hospitalization, Other)
  Sender: FDA-Public Use
  Company Number: SYM-2014-19510

PATIENT
  Age: 15 Year
  Sex: Male
  Weight: 88 kg

DRUGS (10)
  1. ATIVAN (LORAZEPAM) [Suspect]
     Indication: NAUSEA
  2. CRIZOTINIB [Suspect]
     Indication: DESMOPLASTIC SMALL ROUND CELL TUMOUR
     Route: 048
     Dates: start: 20131212, end: 20131220
  3. TOPOTECAN HYDROCHLORIDE [Suspect]
     Indication: DESMOPLASTIC SMALL ROUND CELL TUMOUR
     Route: 042
     Dates: start: 20131213, end: 20131217
  4. CYCLOPHOSPHAMIDE (CYCLOPHOSPHAMIDE) [Suspect]
     Indication: DESMOPLASTIC SMALL ROUND CELL TUMOUR
     Route: 042
     Dates: start: 20131213, end: 20131217
  5. BENADRYL (DIPHENHYDRAMINE HYDROCHLORIDE) [Suspect]
     Indication: PRODUCT USED FOR UNKNOWN INDICATION
  6. DRONABINOL [Suspect]
     Indication: PRODUCT USED FOR UNKNOWN INDICATION
  7. PHENERGAN (PROMETHAZINE) [Suspect]
     Indication: PRODUCT USED FOR UNKNOWN INDICATION
  8. HYOSCINE [Suspect]
     Indication: PRODUCT USED FOR UNKNOWN INDICATION
  9. DEXAMETHASONE (DEXAMETHASONE) [Concomitant]
  10. ZOFRAN (ONDANSETRON HYDROCHLORIDE) [Concomitant]

REACTIONS (8)
  - Hypoxia [None]
  - Nausea [None]
  - Decreased appetite [None]
  - Weight decreased [None]
  - Impaired gastric emptying [None]
  - Dehydration [None]
  - Diarrhoea [None]
  - Faecal incontinence [None]
